FAERS Safety Report 16706686 (Version 1)
Quarter: 2019Q3

REPORT INFORMATION
  Report Type: Spontaneous
  Country: IL (occurrence: IL)
  Receive Date: 20190815
  Receipt Date: 20190815
  Transmission Date: 20191004
  Serious: Yes (Hospitalization, Other)
  Sender: FDA-Public Use
  Company Number: IL-BAYER-2019-138949

PATIENT
  Age: 39 Year
  Sex: Female

DRUGS (2)
  1. MIRENA [Suspect]
     Active Substance: LEVONORGESTREL
     Dosage: UNK
     Route: 015
     Dates: start: 20190526, end: 201907
  2. MIRENA [Suspect]
     Active Substance: LEVONORGESTREL
     Dosage: 20 MCG/24HR, CONT
     Route: 015
     Dates: start: 20190526, end: 201907

REACTIONS (8)
  - Pelvic inflammatory disease [Recovered/Resolved]
  - Pelvic fluid collection [Recovered/Resolved]
  - Fallopian tube disorder [Recovered/Resolved]
  - Malaise [Recovered/Resolved]
  - Pelvic pain [Recovered/Resolved]
  - Appendicitis [Recovered/Resolved]
  - Pelvic abscess [Recovered/Resolved]
  - Uterine disorder [Recovered/Resolved]

NARRATIVE: CASE EVENT DATE: 201907
